FAERS Safety Report 4681744-3 (Version None)
Quarter: 2005Q2

REPORT INFORMATION
  Report Type: 
  Country: None (occurrence: None)
  Receive Date: 20050602
  Receipt Date: 20050520
  Transmission Date: 20051028
  Serious: Yes (Hospitalization)
  Sender: FDA-Public Use
  Company Number: CERZ-10823

PATIENT
  Age: 41 Year
  Sex: Female
  Weight: 65.8 kg

DRUGS (1)
  1. CEREZYME [Suspect]
     Indication: GAUCHER'S DISEASE
     Dosage: 1800 UNITS Q2WKS; IV
     Route: 042
     Dates: start: 19990127

REACTIONS (3)
  - ARTHRALGIA [None]
  - DEVICE FAILURE [None]
  - POST PROCEDURAL COMPLICATION [None]
